FAERS Safety Report 20572112 (Version 1)
Quarter: 2022Q1

REPORT INFORMATION
  Report Type: Spontaneous
  Country: HU (occurrence: HU)
  Receive Date: 20220309
  Receipt Date: 20220309
  Transmission Date: 20220423
  Serious: Yes (Hospitalization)
  Sender: FDA-Public Use
  Company Number: HU-MYLANLABS-2022M1018017

PATIENT
  Age: 63 Year
  Sex: Male

DRUGS (2)
  1. SUNITINIB [Interacting]
     Active Substance: SUNITINIB
     Indication: Meningioma malignant
     Dosage: UNK
     Route: 065
  2. AMIODARONE [Interacting]
     Active Substance: AMIODARONE
     Indication: Atrial fibrillation
     Dosage: UNK
     Route: 065

REACTIONS (2)
  - Autoimmune thyroiditis [Recovering/Resolving]
  - Drug interaction [Recovering/Resolving]
